FAERS Safety Report 18212286 (Version 3)
Quarter: 2020Q4

REPORT INFORMATION
  Report Type: Spontaneous
  Country: JP (occurrence: JP)
  Receive Date: 20200831
  Receipt Date: 20201001
  Transmission Date: 20210113
  Serious: Yes (Other)
  Sender: FDA-Public Use
  Company Number: NVSJ2020JP008162

PATIENT
  Age: 69 Year
  Sex: Male
  Weight: 57.5 kg

DRUGS (6)
  1. EPADEL [Concomitant]
     Active Substance: ICOSAPENT
     Indication: CEREBRAL INFARCTION
     Dosage: 1 DF, BID
     Route: 065
  2. TELMISARTAN AND AMLODIPINE [Concomitant]
     Active Substance: AMLODIPINE BESYLATE\TELMISARTAN
     Indication: HYPERTENSION
     Dosage: 1 DF, UNK
     Route: 065
  3. METFORMIN HYDROCHLORIDE. [Concomitant]
     Active Substance: METFORMIN HYDROCHLORIDE
     Indication: TYPE 2 DIABETES MELLITUS
     Dosage: 1 DF, BID,
     Route: 065
  4. EQUMET [Suspect]
     Active Substance: METFORMIN HYDROCHLORIDE\VILDAGLIPTIN
     Indication: TYPE 2 DIABETES MELLITUS
     Dosage: 1 DF, METFORMIN HYDROCHLORIDE 500MG/ VILDAGLIPTIN 50MG,BID
     Route: 048
     Dates: start: 20180227, end: 20200818
  5. FENOFIBRATE. [Concomitant]
     Active Substance: FENOFIBRATE
     Indication: DYSLIPIDAEMIA
     Dosage: 1 DF, UNK
     Route: 065
  6. BAYASPIRIN [Concomitant]
     Active Substance: ASPIRIN
     Indication: CEREBRAL INFARCTION
     Dosage: 100 MG
     Route: 065

REACTIONS (5)
  - Erythema [Unknown]
  - Blister [Unknown]
  - Blister rupture [Unknown]
  - Dermatitis [Unknown]
  - Pemphigoid [Unknown]

NARRATIVE: CASE EVENT DATE: 202007
